FAERS Safety Report 23588243 (Version 1)
Quarter: 2024Q1

REPORT INFORMATION
  Report Type: Spontaneous
  Country: JP (occurrence: JP)
  Receive Date: 20240302
  Receipt Date: 20240302
  Transmission Date: 20240410
  Serious: Yes (Other)
  Sender: FDA-Public Use
  Company Number: JP-UCBJ-CD202401610UCBPHAPROD

PATIENT
  Age: 1 Year
  Sex: Male

DRUGS (3)
  1. LEVETIRACETAM [Suspect]
     Active Substance: LEVETIRACETAM
     Indication: Partial seizures
     Dosage: UNK
     Route: 048
  2. MIDAZOLAM [Concomitant]
     Active Substance: MIDAZOLAM
     Indication: Partial seizures
     Dosage: UNK
  3. PHENOBARBITAL [Concomitant]
     Active Substance: PHENOBARBITAL
     Indication: Partial seizures
     Dosage: UNK

REACTIONS (7)
  - Altered state of consciousness [Unknown]
  - Respiratory failure [Unknown]
  - Temporal lobe epilepsy [Unknown]
  - Hippocampal sclerosis [Unknown]
  - Intellectual disability [Unknown]
  - Multiple-drug resistance [Unknown]
  - Off label use [Unknown]
